FAERS Safety Report 6567766-6 (Version None)
Quarter: 2010Q1

REPORT INFORMATION
  Report Type: 
  Country: None (occurrence: None)
  Receive Date: 20100203
  Receipt Date: 20100125
  Transmission Date: 20100710
  Serious: Yes (Hospitalization)
  Sender: FDA-Public Use
  Company Number: FR-ASTRAZENECA-2010SE03654

PATIENT
  Age: 29956 Day
  Sex: Female

DRUGS (12)
  1. NEXIUM [Suspect]
     Dosage: 1 DF, DAILY; START DATE: BETWEEN JULY 2007 AND SEPTEMBER 2009
     Route: 048
  2. AMLOR [Concomitant]
     Route: 048
  3. LEVOTHYROXINE SODIUM [Concomitant]
     Route: 048
  4. PRAZEPAM [Concomitant]
     Route: 048
     Dates: start: 19990101
  5. SEROPLEX [Concomitant]
     Route: 048
     Dates: start: 19990101
  6. TAHOR [Concomitant]
     Route: 048
  7. STILNOX [Concomitant]
     Route: 048
  8. FORLAX [Concomitant]
     Dosage: 10, 2 DF PER DAY
     Route: 065
  9. DAFALGAN [Concomitant]
     Route: 065
  10. VITASCORBOL [Concomitant]
     Route: 065
  11. SPIRIVA [Concomitant]
     Route: 065
  12. SERETIDE [Concomitant]
     Route: 065

REACTIONS (1)
  - PNEUMONIA [None]
